FAERS Safety Report 6654559-4 (Version None)
Quarter: 2010Q1

REPORT INFORMATION
  Report Type: 
  Country: None (occurrence: None)
  Receive Date: 20100326
  Receipt Date: 20100323
  Transmission Date: 20100710
  Serious: Yes (Other)
  Sender: FDA-Public Use
  Company Number: US-PFIZER INC-2010037984

PATIENT
  Sex: Male
  Weight: 72.562 kg

DRUGS (3)
  1. DETROL LA [Suspect]
     Indication: HYPERTONIC BLADDER
     Dosage: 4 MG, 1X/DAY
     Route: 048
     Dates: start: 20100201, end: 20100201
  2. DETROL LA [Suspect]
     Dosage: 4 MG, 1X/DAY
     Dates: start: 20100301, end: 20100301
  3. TOVIAZ [Suspect]
     Indication: HYPERTONIC BLADDER
     Dosage: 4 MG, 1X/DAY
     Route: 048
     Dates: start: 20100201, end: 20100301

REACTIONS (5)
  - ABDOMINAL DISCOMFORT [None]
  - BLADDER DISCOMFORT [None]
  - DYSURIA [None]
  - URINARY TRACT INFECTION FUNGAL [None]
  - URINE FLOW DECREASED [None]
